FAERS Safety Report 12873056 (Version 2)
Quarter: 2016Q4

REPORT INFORMATION
  Report Type: Report from Study
  Country: None (occurrence: US)
  Receive Date: 20161021
  Receipt Date: 20161025
  Transmission Date: 20170207
  Serious: Yes (Hospitalization, Other)
  Sender: FDA-Public Use
  Company Number: US-ABBVIE-16K-163-1719944-00

PATIENT
  Age: 55 Year
  Sex: Female

DRUGS (2)
  1. 6 MP [Concomitant]
     Active Substance: MERCAPTOPURINE
     Indication: PRODUCT USED FOR UNKNOWN INDICATION
  2. HUMIRA [Suspect]
     Active Substance: ADALIMUMAB
     Indication: CROHN^S DISEASE
     Route: 058
     Dates: start: 20150415, end: 20160801

REACTIONS (7)
  - Ileectomy [Unknown]
  - Injection site pain [Recovered/Resolved]
  - Intestinal fistula repair [Unknown]
  - Large intestine polyp [Recovered/Resolved]
  - Post procedural infection [Recovering/Resolving]
  - Procedural vomiting [Recovered/Resolved]
  - Clostridium difficile infection [Unknown]

NARRATIVE: CASE EVENT DATE: 20150415
